FAERS Safety Report 4976491-4 (Version None)
Quarter: 2006Q2

REPORT INFORMATION
  Report Type: 
  Country: None (occurrence: None)
  Receive Date: 20060419
  Receipt Date: 20060309
  Transmission Date: 20061013
  Serious: Yes (Life-Threatening, Hospitalization)
  Sender: FDA-Public Use
  Company Number: 2006AP01128

PATIENT
  Age: 10 Year
  Sex: Male
  Weight: 25 kg

DRUGS (13)
  1. MEROPEN [Suspect]
     Indication: SEPSIS
     Route: 041
     Dates: start: 20050103, end: 20050114
  2. VANCOMYCIN [Suspect]
     Indication: SEPSIS
     Route: 041
     Dates: start: 20050106
  3. NEU-UP [Concomitant]
     Indication: SEPSIS
     Route: 042
     Dates: start: 20050103
  4. PREDOPA [Concomitant]
     Route: 041
     Dates: start: 20050103
  5. FUNGARD [Concomitant]
     Indication: SEPSIS
     Route: 041
     Dates: start: 20050103
  6. FUTHAN [Concomitant]
     Route: 041
     Dates: start: 20050103
  7. DORMICUM [Concomitant]
     Dates: start: 20050103
  8. OMEPRAZOLE [Concomitant]
     Route: 042
     Dates: start: 20050104
  9. DOBUTREX [Concomitant]
     Route: 041
     Dates: start: 20050104
  10. KENKETU VENILON [Concomitant]
     Indication: SEPSIS
     Route: 042
     Dates: start: 20050104
  11. ELASPOL [Concomitant]
     Route: 042
     Dates: start: 20050104
  12. ALBUMIN (HUMAN) [Concomitant]
     Route: 042
     Dates: start: 20050104
  13. NEUART [Concomitant]
     Route: 042
     Dates: start: 20050105

REACTIONS (2)
  - HEPATIC FUNCTION ABNORMAL [None]
  - JAUNDICE [None]
